FAERS Safety Report 4383064-3 (Version None)
Quarter: 2004Q2

REPORT INFORMATION
  Report Type: 
  Country: None (occurrence: None)
  Receive Date: 20040610
  Receipt Date: 20040419
  Transmission Date: 20050107
  Serious: No
  Sender: FDA-Public Use
  Company Number: US-JNJFOC-20040403927

PATIENT
  Age: 59 Year
  Sex: Male
  Weight: 86 kg

DRUGS (7)
  1. NATRECOR [Suspect]
     Indication: DRUG USE FOR UNKNOWN INDICATION
     Dosage: 2 UG/KG, INTRAVENOUS
     Route: 042
     Dates: start: 20040418
  2. NATRECOR [Suspect]
     Dosage: 0.01 UG/KG/MIN, INTRAVENOUS
     Route: 042
     Dates: start: 20040418
  3. LEVAQUIN [Suspect]
     Indication: DRUG USE FOR UNKNOWN INDICATION
     Dosage: ORAL
     Route: 048
  4. FLAGYL [Concomitant]
  5. ZAROXOLYN [Concomitant]
  6. RESTORIL [Concomitant]
  7. LASIX [Concomitant]

REACTIONS (1)
  - VISION BLURRED [None]
